FAERS Safety Report 21628301 (Version 1)
Quarter: 2022Q4

REPORT INFORMATION
  Report Type: Spontaneous
  Country: US (occurrence: US)
  Receive Date: 20221122
  Receipt Date: 20221122
  Transmission Date: 20230113
  Serious: Yes (Hospitalization, Other)
  Sender: FDA-Public Use
  Company Number: US-PFIZER INC-202101753184

PATIENT
  Age: 66 Year
  Sex: Female

DRUGS (2)
  1. XELJANZ XR [Suspect]
     Active Substance: TOFACITINIB CITRATE
     Indication: Arthritis
     Dosage: 11 MG
  2. XELJANZ XR [Suspect]
     Active Substance: TOFACITINIB CITRATE
     Dosage: 22 MG (SHE TOOK 2 PILLS INSTEAD OF 1 PILL PRESCRIBED

REACTIONS (5)
  - Illness [Unknown]
  - Syncope [Unknown]
  - Intentional overdose [Unknown]
  - Therapeutic response unexpected [Unknown]
  - Nasopharyngitis [Unknown]
